FAERS Safety Report 16234854 (Version 2)
Quarter: 2019Q2

REPORT INFORMATION
  Report Type: Spontaneous
  Country: US (occurrence: US)
  Receive Date: 20190424
  Receipt Date: 20190522
  Transmission Date: 20190711
  Serious: No
  Sender: FDA-Public Use
  Company Number: US-LEXICON PHARMACEUTICALS, INC-19-1606-00430

PATIENT
  Sex: Female

DRUGS (4)
  1. TELOTRISTAT ETHYL [Suspect]
     Active Substance: TELOTRISTAT ETHYL
     Indication: CARCINOID SYNDROME
     Route: 048
     Dates: start: 20170522
  2. LETROZOLE. [Concomitant]
     Active Substance: LETROZOLE
     Route: 048
  3. SANDOSTATIN [Concomitant]
     Active Substance: OCTREOTIDE ACETATE
  4. CRESTOR [Concomitant]
     Active Substance: ROSUVASTATIN CALCIUM
     Route: 048

REACTIONS (4)
  - Diarrhoea [Unknown]
  - Bone pain [Recovering/Resolving]
  - Off label use [Unknown]
  - Arthralgia [Recovering/Resolving]
